FAERS Safety Report 9469180 (Version 2)
Quarter: 2013Q4

REPORT INFORMATION
  Report Type: Report from Study
  Country: FR (occurrence: FR)
  Receive Date: 20130821
  Receipt Date: 20131104
  Transmission Date: 20140711
  Serious: Yes (Life-Threatening)
  Sender: FDA-Public Use
  Company Number: FR-JNJFOC-20130811211

PATIENT
  Sex: Female

DRUGS (2)
  1. DOXORUBICIN HYDROCHLORIDE [Suspect]
     Indication: BREAST CANCER METASTATIC
     Dosage: 30 TO 60 MINUTES; SIX COURSES
     Route: 042
  2. PYRIDOXINE [Concomitant]
     Route: 065

REACTIONS (1)
  - Lymphocyte count decreased [Unknown]
